FAERS Safety Report 11877899 (Version 1)
Quarter: 2015Q4

REPORT INFORMATION
  Report Type: Spontaneous
  Country: IN (occurrence: IN)
  Receive Date: 20151230
  Receipt Date: 20151230
  Transmission Date: 20160305
  Serious: Yes (Other)
  Sender: FDA-Public Use
  Company Number: IN-ALVOGEN-2015-ALVOGEN-020660

PATIENT
  Age: 31 Year
  Sex: Male

DRUGS (1)
  1. DISULFIRAM. [Suspect]
     Active Substance: DISULFIRAM
     Indication: ALCOHOLISM

REACTIONS (2)
  - Hypertension [Unknown]
  - Generalised tonic-clonic seizure [Not Recovered/Not Resolved]
